FAERS Safety Report 6121959-0 (Version None)
Quarter: 2009Q1

REPORT INFORMATION
  Report Type: 
  Country: None (occurrence: None)
  Receive Date: 20090316
  Receipt Date: 20090303
  Transmission Date: 20090719
  Serious: Yes (Other)
  Sender: FDA-Public Use
  Company Number: 2009-190986-NL

PATIENT
  Age: 41 Year
  Sex: Female
  Weight: 53.4 kg

DRUGS (14)
  1. ROCURONIUM BROMIDE [Suspect]
     Dosage: 35 MG
     Dates: start: 20081201, end: 20081201
  2. SUCCINYLCHOLINE CHLORIDE [Concomitant]
  3. FENTANYL-25 [Concomitant]
  4. EPHEDRIN [Concomitant]
  5. MYELON [Concomitant]
  6. CALCIUM CHLORIDE ^BIOTIKA^ [Concomitant]
  7. VICCILLIN [Concomitant]
  8. SEVPF;IRANE [Concomitant]
  9. PROPOFOL [Concomitant]
  10. ULTIVA [Concomitant]
  11. MAGSENT [Concomitant]
  12. FERROMIA [Concomitant]
  13. UTE,EROM [Concomitant]
  14. BRICANYL [Concomitant]

REACTIONS (5)
  - ABDOMINAL PAIN UPPER [None]
  - ANAEMIA OF PREGNANCY [None]
  - CAESAREAN SECTION [None]
  - DRUG EXPOSURE DURING PREGNANCY [None]
  - PREMATURE LABOUR [None]
